FAERS Safety Report 7402765 (Version 5)
Quarter: 2015Q2

REPORT INFORMATION
  Report Type: Spontaneous
  Country: US (occurrence: US)
  Receive Date: 20100528
  Receipt Date: 20150422
  Transmission Date: 20150821
  Serious: Yes (Other)
  Sender: FDA-Public Use
  Company Number: US-JNJFOC-20100509740

PATIENT
  Age: 11 Year
  Sex: Male
  Weight: 38.56 kg

DRUGS (6)
  1. CHILDRENS MOTRIN [Suspect]
     Active Substance: IBUPROFEN
     Indication: HEADACHE
     Route: 048
     Dates: end: 20100329
  2. CHILDRENS TYLENOL [Suspect]
     Active Substance: ACETAMINOPHEN
     Indication: PYREXIA
     Dosage: EVERY 4-6 HOURS
     Route: 048
     Dates: start: 20100325, end: 20100330
  3. CHILDRENS ZYRTEC ALLERGY [Suspect]
     Active Substance: CETIRIZINE HYDROCHLORIDE
     Indication: HEADACHE
     Dosage: 2 TSP
     Route: 048
     Dates: start: 20100325, end: 20100329
  4. CHILDRENS MOTRIN [Suspect]
     Active Substance: IBUPROFEN
     Route: 048
  5. CHILDRENS TYLENOL [Suspect]
     Active Substance: ACETAMINOPHEN
     Route: 048
  6. CHILDRENS ZYRTEC ALLERGY [Suspect]
     Active Substance: CETIRIZINE HYDROCHLORIDE
     Route: 048

REACTIONS (14)
  - Rash [Recovering/Resolving]
  - Abasia [Recovering/Resolving]
  - Gait disturbance [Recovering/Resolving]
  - Off label use [Unknown]
  - Kawasaki^s disease [None]
  - Skin exfoliation [Recovered/Resolved with Sequelae]
  - Palpitations [Recovering/Resolving]
  - Drug administration error [None]
  - Gait disturbance [None]
  - Dyspnoea [Recovering/Resolving]
  - Arthralgia [Not Recovered/Not Resolved]
  - Product quality issue [Unknown]
  - Eye swelling [Recovering/Resolving]
  - Mydriasis [Recovering/Resolving]

NARRATIVE: CASE EVENT DATE: 20100326
